FAERS Safety Report 25453375 (Version 2)
Quarter: 2025Q3

REPORT INFORMATION
  Report Type: Spontaneous
  Country: GB (occurrence: GB)
  Receive Date: 20250619
  Receipt Date: 20250710
  Transmission Date: 20251021
  Serious: Yes (Hospitalization, Disabling, Other)
  Sender: TEVA
  Company Number: None

PATIENT
  Age: 54 Year
  Sex: Male
  Weight: 86 kg

DRUGS (62)
  1. AMITRIPTYLINE [Suspect]
     Active Substance: AMITRIPTYLINE
     Indication: Neuralgia
     Dosage: AT NIGHT
     Dates: start: 20220115
  2. GABAPENTIN [Concomitant]
     Active Substance: GABAPENTIN
     Indication: Neuralgia
     Route: 065
     Dates: start: 20220328, end: 20220412
  3. GABAPENTIN [Concomitant]
     Active Substance: GABAPENTIN
     Indication: Neuralgia
     Route: 065
     Dates: start: 20220217, end: 20220227
  4. GABAPENTIN [Concomitant]
     Active Substance: GABAPENTIN
     Indication: Neuralgia
     Route: 065
     Dates: start: 20220413
  5. LIDOCAINE [Concomitant]
     Active Substance: LIDOCAINE
     Indication: Neuralgia
     Route: 062
     Dates: start: 20230428
  6. LIDOCAINE [Concomitant]
     Active Substance: LIDOCAINE
     Indication: Neuralgia
     Route: 065
     Dates: start: 20230316, end: 20230316
  7. ACETAMINOPHEN\TRAMADOL [Concomitant]
     Active Substance: ACETAMINOPHEN\TRAMADOL
     Indication: Neuralgia
     Dates: start: 20220413
  8. UNSPECIFIED INGREDIENT [Concomitant]
     Active Substance: UNSPECIFIED INGREDIENT
     Indication: Urinary tract infection
     Route: 065
     Dates: start: 20220509
  9. UNSPECIFIED INGREDIENT [Concomitant]
     Active Substance: UNSPECIFIED INGREDIENT
     Indication: Urinary tract infection
     Route: 065
     Dates: start: 20230408, end: 20230510
  10. HYPROMELLOSES [Concomitant]
     Active Substance: HYPROMELLOSES
     Indication: Keratitis
     Dosage: OCC LACRI-LUBE OINTMENT AT NIGHT, G IKERVIS EYE DROPS ONCE A DAY - ALL LONG TERM.
     Route: 065
  11. BOTOX [Concomitant]
     Active Substance: ONABOTULINUMTOXINA
     Indication: Neuralgia
     Route: 065
     Dates: start: 20230404, end: 20230517
  12. PRIVIGEN [Suspect]
     Active Substance: HUMAN IMMUNOGLOBULIN G
     Indication: Photophobia
     Route: 065
     Dates: start: 20240115, end: 20240117
  13. PRIVIGEN [Suspect]
     Active Substance: HUMAN IMMUNOGLOBULIN G
     Indication: Photophobia
     Route: 042
     Dates: start: 20231124, end: 20231126
  14. ZOPICLONE [Concomitant]
     Active Substance: ZOPICLONE
     Indication: Insomnia
     Route: 065
  15. NAPROXEN [Concomitant]
     Active Substance: NAPROXEN
     Indication: Neuralgia
  16. OXCARBAZEPINE [Suspect]
     Active Substance: OXCARBAZEPINE
     Indication: Neuralgia
     Dates: start: 20221013, end: 20221207
  17. LACOSAMIDE [Concomitant]
     Active Substance: LACOSAMIDE
     Indication: Product used for unknown indication
     Route: 065
     Dates: start: 20231112, end: 20231121
  18. LACOSAMIDE [Concomitant]
     Active Substance: LACOSAMIDE
     Indication: Product used for unknown indication
     Dates: start: 20231023, end: 20231101
  19. LACOSAMIDE [Concomitant]
     Active Substance: LACOSAMIDE
     Indication: Product used for unknown indication
     Route: 065
     Dates: start: 20231202, end: 20231211
  20. LACOSAMIDE [Concomitant]
     Active Substance: LACOSAMIDE
     Indication: Product used for unknown indication
     Route: 065
     Dates: start: 20231102, end: 20241111
  21. LACOSAMIDE [Concomitant]
     Active Substance: LACOSAMIDE
     Indication: Product used for unknown indication
     Route: 065
     Dates: start: 20231122, end: 20231201
  22. PREGABALIN [Suspect]
     Active Substance: PREGABALIN
     Indication: Neuralgia
     Route: 065
     Dates: start: 20221119, end: 20221126
  23. PREGABALIN [Suspect]
     Active Substance: PREGABALIN
     Indication: Neuralgia
     Route: 065
  24. PREGABALIN [Suspect]
     Active Substance: PREGABALIN
     Indication: Neuralgia
     Route: 065
     Dates: start: 20221127
  25. PREGABALIN [Suspect]
     Active Substance: PREGABALIN
     Indication: Neuralgia
     Route: 065
     Dates: start: 20221111, end: 20221118
  26. PREGABALIN [Suspect]
     Active Substance: PREGABALIN
     Indication: Neuralgia
     Dates: start: 20220803
  27. PREGABALIN [Suspect]
     Active Substance: PREGABALIN
     Indication: Neuralgia
     Route: 065
  28. NALTREXONE [Concomitant]
     Active Substance: NALTREXONE
     Indication: Product used for unknown indication
     Dosage: LOW DOSE
  29. BACLOFEN [Concomitant]
     Active Substance: BACLOFEN
     Indication: Neuralgia
     Dates: end: 20220803
  30. BACLOFEN [Concomitant]
     Active Substance: BACLOFEN
     Indication: Neuralgia
     Route: 065
  31. PREDNISOLONE [Suspect]
     Active Substance: PREDNISOLONE
     Indication: Electric shock sensation
     Route: 048
     Dates: start: 20230911, end: 20230918
  32. PREDNISOLONE [Suspect]
     Active Substance: PREDNISOLONE
     Indication: Electric shock sensation
     Route: 065
  33. PREDNISOLONE [Suspect]
     Active Substance: PREDNISOLONE
     Indication: Electric shock sensation
     Route: 065
     Dates: start: 20220328, end: 20220403
  34. METHYLCOBALAMIN [Concomitant]
     Active Substance: METHYLCOBALAMIN
     Indication: Product used for unknown indication
     Route: 060
  35. ACYCLOVIR [Concomitant]
     Active Substance: ACYCLOVIR
     Indication: Neuralgia
     Route: 065
     Dates: start: 20220328, end: 20220403
  36. FERROUS FUMARATE [Concomitant]
     Active Substance: FERROUS FUMARATE
     Indication: Product used for unknown indication
     Route: 048
  37. VYEPTI [Suspect]
     Active Substance: EPTINEZUMAB-JJMR
     Indication: Neuralgia
     Route: 065
     Dates: start: 20230814, end: 20230814
  38. MIRTAZAPINE [Concomitant]
     Active Substance: MIRTAZAPINE
     Indication: Depression
     Dosage: AT NIGHT
     Route: 048
     Dates: start: 20230412
  39. MAGNESIUM [Concomitant]
     Active Substance: MAGNESIUM
     Indication: Neuralgia
     Route: 065
     Dates: start: 20230316, end: 20230316
  40. ONDANSETRON [Concomitant]
     Active Substance: ONDANSETRON
     Indication: Nausea
  41. Ducilia [Concomitant]
     Indication: Neuralgia
     Route: 065
     Dates: start: 20230911
  42. DULOXETINE [Concomitant]
     Active Substance: DULOXETINE
     Indication: Neuralgia
     Route: 065
     Dates: start: 20230911
  43. BUPRENORPHINE [Concomitant]
     Active Substance: BUPRENORPHINE
     Indication: Product used for unknown indication
     Route: 062
  44. COCODAMOL [Concomitant]
     Active Substance: ACETAMINOPHEN\CODEINE PHOSPHATE
     Indication: Neuralgia
     Dates: start: 20230911
  45. COCODAMOL [Concomitant]
     Active Substance: ACETAMINOPHEN\CODEINE PHOSPHATE
     Indication: Neuralgia
     Dosage: AS REQUIRED
     Route: 065
     Dates: start: 20220217
  46. UNSPECIFIED INGREDIENT [Concomitant]
     Active Substance: UNSPECIFIED INGREDIENT
     Indication: Product used for unknown indication
     Route: 065
     Dates: start: 20240711, end: 20240711
  47. PHENYTOIN [Concomitant]
     Active Substance: PHENYTOIN
     Indication: Neuralgia
     Dates: start: 20220526
  48. PHENYTOIN [Concomitant]
     Active Substance: PHENYTOIN
     Indication: Neuralgia
     Route: 065
  49. PFIZER-BIONTECH COVID-19 VACCINE [Suspect]
     Active Substance: TOZINAMERAN
     Indication: Adverse drug reaction
     Route: 065
     Dates: start: 20211215
  50. OMEPRAZOLE [Concomitant]
     Active Substance: OMEPRAZOLE
     Indication: Product used for unknown indication
     Dosage: WHEN REQUIRED
     Dates: start: 20230911
  51. OXYCODONE HYDROCHLORIDE [Suspect]
     Active Substance: OXYCODONE HYDROCHLORIDE
     Indication: Neuralgia
     Route: 048
     Dates: start: 20220803, end: 20230727
  52. DIAZEPAM [Concomitant]
     Active Substance: DIAZEPAM
     Indication: Product used for unknown indication
     Dosage: AS REQUIRED
  53. LAMOTRIGINE [Concomitant]
     Active Substance: LAMOTRIGINE
     Indication: Pain
     Route: 065
     Dates: start: 20230223, end: 20230301
  54. LAMOTRIGINE [Concomitant]
     Active Substance: LAMOTRIGINE
     Indication: Pain
     Route: 065
     Dates: start: 20230211, end: 20230217
  55. LAMOTRIGINE [Concomitant]
     Active Substance: LAMOTRIGINE
     Indication: Pain
     Route: 065
     Dates: start: 20221231, end: 20230107
  56. LAMOTRIGINE [Concomitant]
     Active Substance: LAMOTRIGINE
     Indication: Pain
     Dates: start: 20221217, end: 20221224
  57. LAMOTRIGINE [Concomitant]
     Active Substance: LAMOTRIGINE
     Indication: Pain
     Route: 065
     Dates: start: 20230128, end: 20230203
  58. LAMOTRIGINE [Concomitant]
     Active Substance: LAMOTRIGINE
     Indication: Pain
     Route: 065
     Dates: start: 20230114, end: 20230121
  59. LAMOTRIGINE [Concomitant]
     Active Substance: LAMOTRIGINE
     Indication: Pain
     Route: 065
     Dates: start: 20230302
  60. LAMOTRIGINE [Concomitant]
     Active Substance: LAMOTRIGINE
     Indication: Pain
     Route: 065
     Dates: start: 20230204, end: 20230210
  61. CARBAMAZEPINE [Concomitant]
     Active Substance: CARBAMAZEPINE
     Indication: Neuralgia
     Route: 065
     Dates: start: 20220404
  62. CARBAMAZEPINE [Concomitant]
     Active Substance: CARBAMAZEPINE
     Indication: Neuralgia
     Dates: start: 20220420, end: 20220503

REACTIONS (47)
  - Trigeminal neuralgia [Not Recovered/Not Resolved]
  - Depression [Not Recovered/Not Resolved]
  - White blood cell disorder [Not Recovered/Not Resolved]
  - Urinary tract infection [Not Recovered/Not Resolved]
  - Hypoaesthesia [Not Recovered/Not Resolved]
  - Toothache [Not Recovered/Not Resolved]
  - COVID-19 [Unknown]
  - Influenza like illness [Recovered/Resolved]
  - Confusional state [Not Recovered/Not Resolved]
  - Pain in extremity [Not Recovered/Not Resolved]
  - Dyspnoea [Not Recovered/Not Resolved]
  - Neuropathy peripheral [Not Recovered/Not Resolved]
  - Rash vesicular [Unknown]
  - Gait disturbance [Not Recovered/Not Resolved]
  - Pyrexia [Not Recovered/Not Resolved]
  - Hypothyroidism [Not Recovered/Not Resolved]
  - Facial pain [Not Recovered/Not Resolved]
  - Hepatic function abnormal [Not Recovered/Not Resolved]
  - Dizziness [Not Recovered/Not Resolved]
  - Paraesthesia [Not Recovered/Not Resolved]
  - Carpal tunnel syndrome [Unknown]
  - Nausea [Not Recovered/Not Resolved]
  - Electric shock sensation [Not Recovered/Not Resolved]
  - Hyponatraemia [Not Recovered/Not Resolved]
  - Chest pain [Unknown]
  - Urinary bladder haemorrhage [Unknown]
  - Dry eye [Unknown]
  - Somnolence [Not Recovered/Not Resolved]
  - Feeling of despair [Not Recovered/Not Resolved]
  - Brain fog [Not Recovered/Not Resolved]
  - Haematological infection [Not Recovered/Not Resolved]
  - Headache [Not Recovered/Not Resolved]
  - Amnesia [Not Recovered/Not Resolved]
  - Tinnitus [Not Recovered/Not Resolved]
  - Punctate keratitis [Unknown]
  - Flushing [Unknown]
  - Lip swelling [Not Recovered/Not Resolved]
  - Anxiety [Unknown]
  - Photophobia [Not Recovered/Not Resolved]
  - Immunosuppression [Unknown]
  - Lethargy [Not Recovered/Not Resolved]
  - Cough [Unknown]
  - Blindness [Not Recovered/Not Resolved]
  - Mouth swelling [Not Recovered/Not Resolved]
  - Spinal pain [Not Recovered/Not Resolved]
  - Mental impairment [Not Recovered/Not Resolved]
  - Suicidal ideation [Not Recovered/Not Resolved]

NARRATIVE: CASE EVENT DATE: 20211217
